FAERS Safety Report 11155992 (Version 2)
Quarter: 2015Q3

REPORT INFORMATION
  Report Type: Spontaneous
  Country: DE (occurrence: DE)
  Receive Date: 20150602
  Receipt Date: 20150818
  Transmission Date: 20151125
  Serious: Yes (Hospitalization, Other)
  Sender: FDA-Public Use
  Company Number: DE-WATSON-2015-11167

PATIENT
  Sex: Male

DRUGS (7)
  1. VIGANTOLETTEN [Concomitant]
     Active Substance: CHOLECALCIFEROL
     Indication: PRODUCT USED FOR UNKNOWN INDICATION
  2. RAMIPRIL. [Concomitant]
     Active Substance: RAMIPRIL
     Indication: PRODUCT USED FOR UNKNOWN INDICATION
  3. CALCIUM [Concomitant]
     Active Substance: CALCIUM
     Indication: PRODUCT USED FOR UNKNOWN INDICATION
  4. PROLIA [Concomitant]
     Active Substance: DENOSUMAB
     Indication: PRODUCT USED FOR UNKNOWN INDICATION
     Dosage: UNK
     Dates: start: 201212
  5. SIMVASTATIN. [Concomitant]
     Active Substance: SIMVASTATIN
     Indication: PRODUCT USED FOR UNKNOWN INDICATION
  6. TRELSTAR [Suspect]
     Active Substance: TRIPTORELIN PAMOATE
     Indication: PARAPHILIA
     Dosage: 11.25 MG, UNK
     Route: 030
     Dates: start: 2009
  7. CLOPIDOGREL [Concomitant]
     Active Substance: CLOPIDOGREL BISULFATE
     Indication: PRODUCT USED FOR UNKNOWN INDICATION

REACTIONS (3)
  - Hydronephrosis [Recovered/Resolved]
  - Acute kidney injury [Recovered/Resolved]
  - Nephrolithiasis [Recovered/Resolved]

NARRATIVE: CASE EVENT DATE: 2015
